FAERS Safety Report 9225299 (Version 2)
Quarter: 2013Q2

REPORT INFORMATION
  Report Type: Spontaneous
  Country: BR (occurrence: BR)
  Receive Date: 20130411
  Receipt Date: 20130412
  Transmission Date: 20140414
  Serious: Yes (Death, Hospitalization, Other)
  Sender: FDA-Public Use
  Company Number: PHHY2013BR035057

PATIENT
  Sex: Female

DRUGS (5)
  1. ACLASTA [Suspect]
     Indication: OSTEOPOROSIS
     Dosage: 5 MG 1 APPLICATION EVERY YEAR
     Route: 042
  2. PROLOPA [Concomitant]
  3. CALCIUM D3 [Concomitant]
  4. RIVOTRIL [Concomitant]
  5. PROCIMAX [Concomitant]
     Indication: DEPRESSION
     Dosage: 20 MG, QD
     Route: 048

REACTIONS (2)
  - Pneumonia [Fatal]
  - Aspiration [Unknown]
